FAERS Safety Report 5700496-9 (Version None)
Quarter: 2008Q2

REPORT INFORMATION
  Report Type: 
  Country: None (occurrence: None)
  Receive Date: 20080408
  Receipt Date: 20080408
  Transmission Date: 20081010
  Serious: No
  Sender: FDA-Public Use
  Company Number: None

PATIENT
  Age: 86 Year
  Sex: Female
  Weight: 61.2356 kg

DRUGS (1)
  1. AMBIEN CR [Suspect]
     Indication: INSOMNIA
     Dosage: 1 TABLET AT BEDTIME PO
     Route: 048
     Dates: start: 20070201, end: 20080202

REACTIONS (5)
  - ABNORMAL SLEEP-RELATED EVENT [None]
  - FALL [None]
  - PAIN [None]
  - ROTATOR CUFF SYNDROME [None]
  - UPPER LIMB FRACTURE [None]
